FAERS Safety Report 9991994 (Version 1)
Quarter: 2014Q1

REPORT INFORMATION
  Report Type: Spontaneous
  Country: US (occurrence: US)
  Receive Date: 20140310
  Receipt Date: 20140310
  Transmission Date: 20141002
  Serious: Yes (Hospitalization)
  Sender: FDA-Public Use
  Company Number: US-BAYER-2014-034373

PATIENT
  Age: 31 Year
  Sex: Female
  Weight: 110 kg

DRUGS (5)
  1. OCELLA [Suspect]
  2. CELEXA [Concomitant]
     Dosage: 20 MG, ONCE A DAY
     Route: 048
  3. VERAPAMIL [Concomitant]
     Dosage: 180 MG, ONCE A DAY
     Route: 048
  4. XANAX [Concomitant]
     Dosage: 0.5 MG, PRN
  5. ALBUTEROL [Concomitant]
     Dosage: INHALATION, PRN

REACTIONS (1)
  - Brain stem stroke [None]
